FAERS Safety Report 13505091 (Version 1)
Quarter: 2017Q2

REPORT INFORMATION
  Report Type: Spontaneous
  Country: US (occurrence: US)
  Receive Date: 20170502
  Receipt Date: 20170502
  Transmission Date: 20170830
  Serious: Yes (Death, Hospitalization, Other)
  Sender: FDA-Public Use
  Company Number: US-TARO-2017TAR00144

PATIENT
  Age: 66 Year
  Sex: Male

DRUGS (1)
  1. AMIODARONE HCL TABLET 200 MG [Suspect]
     Active Substance: AMIODARONE HYDROCHLORIDE
     Indication: ATRIAL FIBRILLATION
     Dosage: UNK
     Route: 048
     Dates: start: 201301, end: 201402

REACTIONS (14)
  - Pneumonia [Fatal]
  - Dyspnoea [Fatal]
  - Disturbance in attention [Recovered/Resolved]
  - Wheezing [Recovered/Resolved]
  - Cough [Recovered/Resolved]
  - Fatigue [Recovered/Resolved]
  - Asthenia [Recovered/Resolved]
  - Nervousness [Recovered/Resolved]
  - Restlessness [Recovered/Resolved]
  - Interstitial lung disease [Fatal]
  - Off label use [Fatal]
  - Irritability [Recovered/Resolved]
  - Toxicity to various agents [Fatal]
  - Depression [Recovered/Resolved]

NARRATIVE: CASE EVENT DATE: 201301
